FAERS Safety Report 10013886 (Version 1)
Quarter: 2014Q1

REPORT INFORMATION
  Report Type: Spontaneous
  Country: US (occurrence: US)
  Receive Date: 20140316
  Receipt Date: 20140316
  Transmission Date: 20141002
  Serious: No
  Sender: FDA-Public Use
  Company Number: US-009507513-1403USA005446

PATIENT
  Age: 62 Year
  Sex: Male

DRUGS (2)
  1. JANUMET [Suspect]
     Indication: DIABETES MELLITUS
     Dosage: 1 TABLET(50/1000 MG) ONCE A DAY
     Route: 048
     Dates: start: 201312
  2. JANUMET [Suspect]
     Dosage: 1 TABLET(50/1000MG) TWICE A DAY,IN THE MORNING AND EVENING
     Route: 048
     Dates: start: 20140306

REACTIONS (2)
  - Pruritus generalised [Not Recovered/Not Resolved]
  - Inappropriate schedule of drug administration [Unknown]
